FAERS Safety Report 16169157 (Version 6)
Quarter: 2020Q1

REPORT INFORMATION
  Report Type: Report from Study
  Country: JP (occurrence: JP)
  Receive Date: 20190408
  Receipt Date: 20200217
  Transmission Date: 20200409
  Serious: Yes (Life-Threatening, Other)
  Sender: FDA-Public Use
  Company Number: JP-INCYTE CORPORATION-2018IN010555

PATIENT

DRUGS (10)
  1. HYDREA [Suspect]
     Active Substance: HYDROXYUREA
     Dosage: 500 MG, UNK
     Route: 048
     Dates: start: 20180416, end: 20180805
  2. HYDREA [Suspect]
     Active Substance: HYDROXYUREA
     Indication: POLYCYTHAEMIA VERA
     Dosage: 750 MG, UNK
     Route: 048
     Dates: end: 20180415
  3. HYDREA [Suspect]
     Active Substance: HYDROXYUREA
     Dosage: 1000 MG, UNK
     Route: 048
     Dates: start: 20180806
  4. HYDREA [Suspect]
     Active Substance: HYDROXYUREA
     Dosage: 1000 MG, UNK
     Route: 048
     Dates: start: 20181227, end: 20190106
  5. JAKAVI [Suspect]
     Active Substance: RUXOLITINIB
     Dosage: 10 MG, BID
     Route: 048
     Dates: start: 20180702, end: 20190322
  6. HYDREA [Suspect]
     Active Substance: HYDROXYUREA
     Dosage: 250 MG, UNK
     Route: 048
     Dates: start: 20181112, end: 20181209
  7. HYDREA [Suspect]
     Active Substance: HYDROXYUREA
     Dosage: 500 MG, UNK
     Route: 048
     Dates: start: 20181210, end: 20181226
  8. JAKAVI [Suspect]
     Active Substance: RUXOLITINIB
     Indication: POLYCYTHAEMIA VERA
     Dosage: 5 MG, BID
     Route: 048
     Dates: start: 20180219, end: 20180701
  9. HYDREA [Suspect]
     Active Substance: HYDROXYUREA
     Dosage: 500 MG, UNK
     Route: 048
     Dates: start: 20180903, end: 20181111
  10. HYDREA [Suspect]
     Active Substance: HYDROXYUREA
     Dosage: 750 MG, UNK
     Route: 048
     Dates: start: 20190107

REACTIONS (6)
  - Anaemia [Not Recovered/Not Resolved]
  - White blood cell count increased [Unknown]
  - Hepatic function abnormal [Not Recovered/Not Resolved]
  - Platelet count decreased [Not Recovered/Not Resolved]
  - Acute leukaemia [Not Recovered/Not Resolved]
  - Blood lactate dehydrogenase increased [Unknown]

NARRATIVE: CASE EVENT DATE: 20180416
